FAERS Safety Report 17063616 (Version 1)
Quarter: 2019Q4

REPORT INFORMATION
  Report Type: Spontaneous
  Country: GB (occurrence: GB)
  Receive Date: 20191122
  Receipt Date: 20191122
  Transmission Date: 20200122
  Serious: Yes (Disabling)
  Sender: FDA-Public Use
  Company Number: GB-TEVA-2019-GB-1139113

PATIENT
  Age: 83 Year
  Sex: Female
  Weight: 60 kg

DRUGS (10)
  1. BENDROFLUMETHIAZIDE [Concomitant]
     Active Substance: BENDROFLUMETHIAZIDE
     Dosage: TAKE IN THE MORNING, 1 DF
     Dates: start: 20170517
  2. MACROGOL [Concomitant]
     Active Substance: POLYETHYLENE GLYCOLS
     Dosage: USE AS DIRECTED.
     Dates: start: 20170228
  3. ADCAL [Concomitant]
     Dosage: 4 DF
     Dates: start: 20171003
  4. COCODAMOL [Concomitant]
     Active Substance: ACETAMINOPHEN\CODEINE PHOSPHATE
     Dosage: TAKE ONE OR TWO UP TO 4 TIMES/DAY.
     Dates: start: 20180704, end: 20180801
  5. LATANOPROST. [Concomitant]
     Active Substance: LATANOPROST
     Dosage: AT NIGHT TO EACH EYE, 1 GTT
     Dates: start: 20180618
  6. ALENDRONIC ACID [Concomitant]
     Active Substance: ALENDRONIC ACID
     Dosage: 1 DF
     Dates: start: 20170517
  7. OMEPRAZOLE. [Concomitant]
     Active Substance: OMEPRAZOLE
     Dosage: 1 DF
     Dates: start: 20170616
  8. RAMIPRIL. [Concomitant]
     Active Substance: RAMIPRIL
     Dosage: 1 DF
     Dates: start: 20170517
  9. NAPROXEN. [Concomitant]
     Active Substance: NAPROXEN
     Dosage: ONE OR TWO TWICE A DAY.
     Dates: start: 20180302
  10. PREGABALIN. [Suspect]
     Active Substance: PREGABALIN
     Dates: start: 20180802

REACTIONS (1)
  - Feeling abnormal [Recovered/Resolved]

NARRATIVE: CASE EVENT DATE: 20180803
